FAERS Safety Report 4507490-4 (Version None)
Quarter: 2004Q4

REPORT INFORMATION
  Report Type: 
  Country: None (occurrence: None)
  Receive Date: 20041123
  Receipt Date: 20040826
  Transmission Date: 20050328
  Serious: Yes (Life-Threatening, Hospitalization)
  Sender: FDA-Public Use
  Company Number: US-NOVOPROD-238928

PATIENT
  Age: 66 Year
  Sex: Female
  Weight: 58 kg

DRUGS (5)
  1. VAGIFEM [Suspect]
     Indication: VULVOVAGINAL DRYNESS
     Dosage: 1 TAB 3X WEEK
     Route: 067
     Dates: start: 20031001, end: 20040610
  2. CITRACAL [Concomitant]
     Indication: BLOOD CALCIUM DECREASED
     Dosage: UNK, UNK
     Route: 048
     Dates: start: 20010101
  3. CENTRUM [Concomitant]
     Indication: PROPHYLAXIS
     Dosage: UNK, UNK
     Route: 048
     Dates: start: 20010101
  4. ESTRACE [Concomitant]
     Indication: HORMONE REPLACEMENT THERAPY
     Dates: start: 19970101, end: 20040201
  5. PROGESTERON [Concomitant]
     Indication: HORMONE REPLACEMENT THERAPY
     Dates: start: 19970101, end: 20040201

REACTIONS (3)
  - ABDOMINAL DISTENSION [None]
  - OVARIAN CANCER [None]
  - VOMITING [None]
